FAERS Safety Report 6520365-4 (Version None)
Quarter: 2009Q4

REPORT INFORMATION
  Report Type: 
  Country: None (occurrence: None)
  Receive Date: 20091229
  Receipt Date: 20080409
  Transmission Date: 20100525
  Serious: Yes (Other)
  Sender: FDA-Public Use
  Company Number: CA-JNJFOC-20080105230

PATIENT
  Age: 54 Year
  Sex: Female
  Weight: 83.92 kg

DRUGS (4)
  1. REMICADE [Suspect]
     Indication: RHEUMATOID ARTHRITIS
     Route: 042
  2. FOLIC ACID [Concomitant]
     Indication: PSORIATIC ARTHROPATHY
     Route: 048
  3. METHOTREXATE [Concomitant]
     Route: 058
  4. METHOTREXATE [Concomitant]
     Indication: PSORIATIC ARTHROPATHY
     Route: 058

REACTIONS (1)
  - TUBERCULIN TEST POSITIVE [None]
